FAERS Safety Report 20138197 (Version 1)
Quarter: 2021Q4

REPORT INFORMATION
  Report Type: Spontaneous
  Country: CN (occurrence: CN)
  Receive Date: 20211202
  Receipt Date: 20211202
  Transmission Date: 20220303
  Serious: Yes (Hospitalization)
  Sender: FDA-Public Use
  Company Number: CN-SA-SAC20211129001202

PATIENT
  Age: 51 Year
  Sex: Female
  Weight: 50 kg

DRUGS (2)
  1. ELOXATIN [Suspect]
     Active Substance: OXALIPLATIN
     Indication: Gastric cancer
     Dosage: 115 MG, QD
     Route: 041
     Dates: start: 20210831, end: 20210831
  2. DEXTROSE [Concomitant]
     Active Substance: DEXTROSE
     Indication: Gastric cancer
     Dosage: 250 ML, QD
     Route: 041
     Dates: start: 20210831, end: 20210831

REACTIONS (2)
  - Pruritus [Recovering/Resolving]
  - Rash [Recovering/Resolving]

NARRATIVE: CASE EVENT DATE: 20210901
